FAERS Safety Report 8974046 (Version 1)
Quarter: 2012Q4

REPORT INFORMATION
  Report Type: 
  Country: US (occurrence: US)
  Receive Date: 20121218
  Receipt Date: 20121218
  Transmission Date: 20130627
  Serious: No
  Sender: FDA-Public Use
  Company Number: US-BRISTOL-MYERS SQUIBB COMPANY-16400301

PATIENT
  Age: 44 Year
  Sex: Female

DRUGS (6)
  1. ABILIFY [Suspect]
     Indication: MAJOR DEPRESSION
     Dates: start: 2010, end: 20120214
  2. ABILIFY [Suspect]
     Indication: DEPRESSION
     Dates: start: 2010, end: 20120214
  3. LAMOTRIGINE [Concomitant]
  4. LUNESTA [Concomitant]
  5. TOPIRAMATE [Concomitant]
  6. STRATTERA [Concomitant]

REACTIONS (1)
  - Eyelid oedema [Recovered/Resolved]
